FAERS Safety Report 9643262 (Version 3)
Quarter: 2014Q1

REPORT INFORMATION
  Report Type: Spontaneous
  Country: US (occurrence: US)
  Receive Date: 20131024
  Receipt Date: 20140220
  Transmission Date: 20141002
  Serious: Yes (Other)
  Sender: FDA-Public Use
  Company Number: US-PFIZER INC-2013299951

PATIENT
  Age: 67 Year
  Sex: Female
  Weight: 74.83 kg

DRUGS (6)
  1. ENBREL [Suspect]
     Indication: RHEUMATOID ARTHRITIS
     Dosage: UNK
     Dates: start: 2012
  2. AMOXICILLIN [Suspect]
     Indication: ORAL PAIN
     Dosage: 500 MG, 1X/DAY
     Dates: start: 201310, end: 2013
  3. XELJANZ [Suspect]
     Indication: RHEUMATOID ARTHRITIS
     Dosage: 5 MG, BID
     Route: 048
     Dates: start: 20131007
  4. HUMIRA [Suspect]
     Indication: RHEUMATOID ARTHRITIS
     Dosage: UNK
     Dates: start: 2013, end: 2013
  5. PREDNISONE [Concomitant]
     Indication: VASCULITIS
     Dosage: UNK
  6. HYDROCODONE [Concomitant]
     Indication: CYST
     Dosage: 325 MG, QD

REACTIONS (9)
  - Tooth disorder [Unknown]
  - Stomatitis [Unknown]
  - Drug ineffective [Unknown]
  - Cough [Unknown]
  - Oropharyngeal pain [Unknown]
  - Malaise [Unknown]
  - Head discomfort [Unknown]
  - Nasopharyngitis [Unknown]
  - Sinusitis [Unknown]
